FAERS Safety Report 6713182-3 (Version None)
Quarter: 2010Q2

REPORT INFORMATION
  Report Type: 
  Country: None (occurrence: None)
  Receive Date: 20100506
  Receipt Date: 20100412
  Transmission Date: 20101027
  Serious: No
  Sender: FDA-Public Use
  Company Number: US-BAYER-201019705NA

PATIENT
  Age: 12 Year
  Sex: Female

DRUGS (1)
  1. MAGNEVIST [Suspect]
     Indication: DRUG USE FOR UNKNOWN INDICATION
     Route: 042
     Dates: start: 20100412, end: 20100412

REACTIONS (4)
  - COUGH [None]
  - RESPIRATORY DISTRESS [None]
  - SNEEZING [None]
  - THROAT TIGHTNESS [None]
